FAERS Safety Report 20641862 (Version 1)
Quarter: 2022Q1

REPORT INFORMATION
  Report Type: Report from Study
  Country: IL (occurrence: None)
  Receive Date: 20220328
  Receipt Date: 20220328
  Transmission Date: 20220423
  Serious: Yes (Other)
  Sender: FDA-Public Use
  Company Number: IL-Merck Healthcare KGaA-9307900

PATIENT
  Sex: Female

DRUGS (1)
  1. CETROTIDE [Suspect]
     Active Substance: CETRORELIX ACETATE
     Indication: Product used for unknown indication
     Dosage: UNIT DOSE: 0.25 (UNIT UNSPECIFIED)
     Dates: start: 20220319, end: 20220319

REACTIONS (3)
  - Syncope [Recovering/Resolving]
  - Dizziness [Recovering/Resolving]
  - Heart rate increased [Recovering/Resolving]

NARRATIVE: CASE EVENT DATE: 20220319
